FAERS Safety Report 8270645-X (Version None)
Quarter: 2012Q2

REPORT INFORMATION
  Report Type: 
  Country: None (occurrence: None)
  Receive Date: 20120410
  Receipt Date: 20120403
  Transmission Date: 20120825
  Serious: Yes (Disabling, Other)
  Sender: FDA-Public Use
  Company Number: US-GENZYME-CART-1000075

PATIENT

DRUGS (4)
  1. CARTICEL [Suspect]
     Indication: CARTILAGE INJURY
  2. EFFEXOR [Concomitant]
     Dosage: 75 MG, QD
     Route: 048
  3. CARTICEL [Suspect]
     Indication: BONE LESION
     Dosage: UNK
     Dates: start: 20110523, end: 20110523
  4. BUSPIRONE HCL [Concomitant]
     Dosage: UNK
     Route: 065

REACTIONS (9)
  - WOUND DEHISCENCE [None]
  - LIGAMENT RUPTURE [None]
  - ARTHRALGIA [None]
  - GRAFT COMPLICATION [None]
  - JOINT EFFUSION [None]
  - JOINT SWELLING [None]
  - JOINT CREPITATION [None]
  - JOINT INSTABILITY [None]
  - WRONG DEVICE USED [None]
